FAERS Safety Report 4781135-0 (Version None)
Quarter: 2005Q3

REPORT INFORMATION
  Report Type: 
  Country: None (occurrence: None)
  Receive Date: 20050926
  Receipt Date: 20050913
  Transmission Date: 20060218
  Serious: Yes (Hospitalization)
  Sender: FDA-Public Use
  Company Number: 2005129189

PATIENT
  Age: 75 Year
  Sex: Female
  Weight: 50 kg

DRUGS (4)
  1. DETROL [Suspect]
     Indication: MICTURITION URGENCY
     Dosage: (1 IN 1 D), ORAL
     Route: 048
     Dates: start: 20050801, end: 20050825
  2. LITHIUM CARBONATE [Concomitant]
  3. VITAMIN B6 (VITAMIN B6) [Concomitant]
  4. ZINC (ZINC) [Concomitant]

REACTIONS (5)
  - AGITATION [None]
  - BIPOLAR DISORDER [None]
  - CONDITION AGGRAVATED [None]
  - HYPOMANIA [None]
  - RESTLESSNESS [None]
